FAERS Safety Report 8227872-7 (Version None)
Quarter: 2012Q1

REPORT INFORMATION
  Report Type: 
  Country: None (occurrence: None)
  Receive Date: 20120322
  Receipt Date: 20120314
  Transmission Date: 20120608
  Serious: Yes (Hospitalization, Other)
  Sender: FDA-Public Use
  Company Number: US-BAYER-2011-050852

PATIENT
  Age: 21 Year
  Sex: Female
  Weight: 54 kg

DRUGS (3)
  1. DROSPIRENONE AND ETHINYL ESTRADIOL [Suspect]
     Dosage: UNK
     Dates: start: 20060501, end: 20090801
  2. NAPROXEN [Concomitant]
     Dosage: UNK
     Dates: start: 20080101
  3. YASMIN [Suspect]
     Dosage: UNK
     Dates: start: 20060501, end: 20090801

REACTIONS (12)
  - EMOTIONAL DISORDER [None]
  - CHOLELITHIASIS [None]
  - ABDOMINAL DISTENSION [None]
  - FLATULENCE [None]
  - BILIARY COLIC [None]
  - DIARRHOEA [None]
  - PAIN [None]
  - ANXIETY [None]
  - DEPRESSION [None]
  - SCAR [None]
  - DYSPEPSIA [None]
  - CONSTIPATION [None]
